FAERS Safety Report 7609202-4 (Version None)
Quarter: 2011Q3

REPORT INFORMATION
  Report Type: 
  Country: None (occurrence: None)
  Receive Date: 20110701
  Receipt Date: 20110622
  Transmission Date: 20111222
  Serious: Yes (Hospitalization)
  Sender: FDA-Public Use
  Company Number: 2011SP002087

PATIENT
  Age: 43 Year
  Sex: Female
  Weight: 63.2 kg

DRUGS (3)
  1. VALPROATE SODIUM [Concomitant]
  2. LURASIDONE HYDROCHLORIDE [Suspect]
     Indication: BIPOLAR I DISORDER
     Dosage: 40 MG; QD; ORAL, 60 MG; QD; ORAL
     Route: 048
     Dates: start: 20110621
  3. LURASIDONE HYDROCHLORIDE [Suspect]
     Indication: BIPOLAR I DISORDER
     Dosage: 40 MG; QD; ORAL, 60 MG; QD; ORAL
     Route: 048
     Dates: start: 20110613

REACTIONS (2)
  - DEPRESSION [None]
  - INSOMNIA [None]
